FAERS Safety Report 5881801-X (Version None)
Quarter: 2008Q3

REPORT INFORMATION
  Report Type: 
  Country: None (occurrence: None)
  Receive Date: 20080912
  Receipt Date: 20080712
  Transmission Date: 20090109
  Serious: No
  Sender: FDA-Public Use
  Company Number: US-ABBOTT-08P-163-0463166-00

PATIENT
  Sex: Male
  Weight: 100.79 kg

DRUGS (1)
  1. HUMIRA [Suspect]
     Indication: RHEUMATOID ARTHRITIS
     Route: 058
     Dates: start: 20080710

REACTIONS (4)
  - DYSPHONIA [None]
  - HYPERSOMNIA [None]
  - NASOPHARYNGITIS [None]
  - TINNITUS [None]
